FAERS Safety Report 10196795 (Version 3)
Quarter: 2014Q2

REPORT INFORMATION
  Report Type: Spontaneous
  Country: JP (occurrence: JP)
  Receive Date: 20140527
  Receipt Date: 20140528
  Transmission Date: 20141212
  Serious: Yes (Other)
  Sender: FDA-Public Use
  Company Number: JP-UCBSA-121862

PATIENT
  Age: 75 Year
  Sex: Female

DRUGS (6)
  1. E KEPPRA [Suspect]
     Indication: EPILEPSY
     Dosage: DRY SYRUP 50%
     Route: 048
     Dates: start: 20140415, end: 20140514
  2. ALEVIATIN [Suspect]
     Dosage: 100MG
     Route: 048
     Dates: start: 20140415, end: 20140514
  3. DESYREL [Suspect]
     Dosage: 2.5 MG
     Route: 048
     Dates: start: 20140415, end: 20140514
  4. EXCEGRAN [Concomitant]
     Dosage: 200MG
     Route: 048
     Dates: start: 20140415
  5. LAXOBERON [Concomitant]
     Dosage: 5MG
     Route: 048
     Dates: start: 20140415
  6. ZOLPIDEM TARTRATE [Concomitant]
     Dosage: 5MG
     Route: 048
     Dates: start: 20140415

REACTIONS (3)
  - White blood cell count decreased [Recovering/Resolving]
  - Granulocyte count decreased [Recovering/Resolving]
  - Blood potassium decreased [Not Recovered/Not Resolved]
